FAERS Safety Report 22587004 (Version 2)
Quarter: 2023Q2

REPORT INFORMATION
  Report Type: Spontaneous
  Country: US (occurrence: None)
  Receive Date: 20230612
  Receipt Date: 20230623
  Transmission Date: 20230721
  Serious: No
  Sender: FDA-Public Use
  Company Number: US-Encube-000369

PATIENT
  Age: 71 Year
  Sex: Female

DRUGS (4)
  1. DESONIDE [Suspect]
     Active Substance: DESONIDE
     Indication: Skin disorder
     Dosage: DISCONTINUED AFTER ONE APPLICATION
     Dates: start: 20230531, end: 20230531
  2. SYNTHROID [Concomitant]
     Active Substance: LEVOTHYROXINE SODIUM
  3. GABAPENTIN [Concomitant]
     Active Substance: GABAPENTIN
  4. MOBIC [Concomitant]
     Active Substance: MELOXICAM

REACTIONS (6)
  - Application site pain [Recovered/Resolved]
  - Application site dryness [Recovering/Resolving]
  - Application site exfoliation [Recovered/Resolved]
  - Wrong product administered [Unknown]
  - Application site discolouration [Not Recovered/Not Resolved]
  - Product prescribing error [Unknown]

NARRATIVE: CASE EVENT DATE: 20230501
